FAERS Safety Report 16530171 (Version 3)
Quarter: 2019Q4

REPORT INFORMATION
  Report Type: Spontaneous
  Country: NL (occurrence: NL)
  Receive Date: 20190704
  Receipt Date: 20191231
  Transmission Date: 20200122
  Serious: Yes (Hospitalization, Other)
  Sender: FDA-Public Use
  Company Number: NL-AUROBINDO-AUR-APL-2019-037576

PATIENT
  Age: 1 Day
  Sex: Female
  Weight: 3 kg

DRUGS (6)
  1. FOLIUMZUUR [Concomitant]
     Active Substance: FOLIC ACID
     Indication: PRODUCT USED FOR UNKNOWN INDICATION
     Dosage: 5 MG, ONCE DAILY (QD)
     Route: 064
  2. FERROFUMARAAT [Concomitant]
     Indication: ANAEMIA
     Dosage: 200 MILLIGRAM, UNK
     Route: 064
  3. VITAMIN K [Concomitant]
     Active Substance: PHYTONADIONE
     Indication: PRODUCT USED FOR UNKNOWN INDICATION
     Dosage: UNK
     Route: 030
     Dates: start: 201203
  4. KEPPRA [Suspect]
     Active Substance: LEVETIRACETAM
     Indication: EPILEPSY
     Dosage: 3 DOSAGE FORM, ONCE A DAY,500-250-250
     Route: 064
     Dates: start: 2011, end: 20120330
  5. FYTOMENADION [Concomitant]
     Indication: PRODUCT USED FOR UNKNOWN INDICATION
     Dosage: 10 MILLIGRAM PER MILLILITRE,PARENT ROUTE: INTRAVENOUS/ORAL
     Route: 064
  6. LAMITRIGINE DISPERSIBLE TABLETS 50MG [Suspect]
     Active Substance: LAMOTRIGINE
     Indication: EPILEPSY
     Dosage: 150 MILLIGRAM, ONCE A DAY (50 MG, 3X/DAY (TID))
     Route: 064
     Dates: start: 2011, end: 20120330

REACTIONS (2)
  - Hypoventilation [Recovered/Resolved]
  - Maternal exposure during pregnancy [Unknown]

NARRATIVE: CASE EVENT DATE: 2011
